FAERS Safety Report 10190053 (Version 1)
Quarter: 2014Q2

REPORT INFORMATION
  Report Type: Spontaneous
  Country: US (occurrence: US)
  Receive Date: 20140522
  Receipt Date: 20140522
  Transmission Date: 20141212
  Serious: Yes (Other)
  Sender: FDA-Public Use
  Company Number: US-AMGEN-USASP2014037157

PATIENT
  Age: 56 Year
  Sex: Female
  Weight: 88.44 kg

DRUGS (11)
  1. ENBREL [Suspect]
     Indication: PRODUCT USED FOR UNKNOWN INDICATION
     Dosage: 50 MG, QWK
     Route: 058
  2. PRAVACHOL [Concomitant]
     Dosage: 20 MG, UNK
  3. METHOTREXATE [Concomitant]
     Dosage: 2.5 MG, UNK
  4. SYNTHROID [Concomitant]
     Dosage: 75 MUG, UNK
  5. ALLEGRA [Concomitant]
     Dosage: 30 MG, UNK
  6. VALTREX [Concomitant]
     Dosage: 500 MG, UNK
  7. VITAMIN D3 [Concomitant]
     Dosage: 1000 UNIT, UNK
  8. CALCIUM [Concomitant]
     Dosage: 500 UNK, UNK
  9. DEXILANT [Concomitant]
     Dosage: 30 MG, UNK
  10. FERROUS SULFATE [Concomitant]
     Dosage: UNK
  11. FOLIC ACID [Concomitant]
     Dosage: UNK

REACTIONS (2)
  - Pharyngitis streptococcal [Unknown]
  - Influenza [Unknown]
